FAERS Safety Report 20151424 (Version 1)
Quarter: 2021Q4

REPORT INFORMATION
  Report Type: Spontaneous
  Country: US (occurrence: US)
  Receive Date: 20211206
  Receipt Date: 20211206
  Transmission Date: 20220303
  Serious: Yes (Hospitalization)
  Sender: FDA-Public Use
  Company Number: US-MYLANLABS-2021M1090210

PATIENT
  Sex: Male

DRUGS (9)
  1. GABAPENTIN [Suspect]
     Active Substance: GABAPENTIN
     Indication: Essential tremor
     Dosage: UNK
     Route: 065
  2. GABAPENTIN [Suspect]
     Active Substance: GABAPENTIN
     Indication: Action tremor
  3. GABAPENTIN [Suspect]
     Active Substance: GABAPENTIN
     Indication: Postural tremor
  4. PROPRANOLOL [Suspect]
     Active Substance: PROPRANOLOL HYDROCHLORIDE
     Indication: Essential tremor
     Dosage: UNK
     Route: 065
  5. PROPRANOLOL [Suspect]
     Active Substance: PROPRANOLOL HYDROCHLORIDE
     Indication: Action tremor
  6. PROPRANOLOL [Suspect]
     Active Substance: PROPRANOLOL HYDROCHLORIDE
     Indication: Postural tremor
  7. PRIMIDONE [Suspect]
     Active Substance: PRIMIDONE
     Indication: Essential tremor
     Dosage: UNK
     Route: 065
  8. PRIMIDONE [Suspect]
     Active Substance: PRIMIDONE
     Indication: Action tremor
  9. PRIMIDONE [Suspect]
     Active Substance: PRIMIDONE
     Indication: Postural tremor

REACTIONS (2)
  - Drug ineffective [Unknown]
  - Off label use [Unknown]
